FAERS Safety Report 16040303 (Version 7)
Quarter: 2021Q3

REPORT INFORMATION
  Report Type: Spontaneous
  Country: US (occurrence: US)
  Receive Date: 20190306
  Receipt Date: 20210903
  Transmission Date: 20211014
  Serious: Yes (Other)
  Sender: FDA-Public Use
  Company Number: US-BAYER-2019-044576

PATIENT
  Age: 57 Year
  Sex: Female

DRUGS (6)
  1. ENDOMETRIN [Concomitant]
     Active Substance: PROGESTERONE
  2. NORETHISTERONE [Concomitant]
     Active Substance: NORETHINDRONE
  3. MINIVELLE [Concomitant]
     Active Substance: ESTRADIOL
     Indication: OSTEOPOROSIS
     Dosage: UNK
     Route: 062
     Dates: start: 2020
  4. SYNTHROID [Concomitant]
     Active Substance: LEVOTHYROXINE SODIUM
     Dosage: UNK
  5. ESTRADIOL HEMIHYDRATE [Suspect]
     Active Substance: ESTRADIOL HEMIHYDRATE
     Indication: OSTEOPOROSIS
     Dosage: UNK
     Route: 062
     Dates: start: 201808, end: 202008
  6. ESTRADIOL HEMIHYDRATE [Suspect]
     Active Substance: ESTRADIOL HEMIHYDRATE
     Indication: OSTEOPOROSIS
     Dosage: UNK
     Route: 062
     Dates: start: 2021, end: 2021

REACTIONS (16)
  - Postmenopausal haemorrhage [Recovered/Resolved]
  - Drug ineffective [None]
  - Headache [None]
  - Uterine leiomyoma [Recovering/Resolving]
  - Postmenopausal haemorrhage [Recovered/Resolved]
  - Postmenopausal haemorrhage [Recovered/Resolved]
  - Nausea [None]
  - Vomiting [None]
  - Product adhesion issue [None]
  - Fibrocystic breast disease [None]
  - Uterine leiomyoma [Recovering/Resolving]
  - Incorrect dose administered [None]
  - Palpitations [Recovered/Resolved]
  - Uterine enlargement [Recovering/Resolving]
  - Allergy to metals [None]
  - Vertigo [None]

NARRATIVE: CASE EVENT DATE: 201808
